FAERS Safety Report 16835313 (Version 1)
Quarter: 2019Q3

REPORT INFORMATION
  Report Type: Spontaneous
  Country: CN (occurrence: CN)
  Receive Date: 20190920
  Receipt Date: 20190920
  Transmission Date: 20191005
  Serious: Yes (Other)
  Sender: FDA-Public Use
  Company Number: CN-ELI_LILLY_AND_COMPANY-CN201909005258

PATIENT
  Age: 72 Year
  Sex: Male

DRUGS (2)
  1. HUMULIN 70/30 [Suspect]
     Active Substance: INSULIN HUMAN
     Indication: DIABETES MELLITUS
     Dosage: 21 U, EACH MORNING
     Route: 058
     Dates: start: 1997
  2. HUMULIN 70/30 [Suspect]
     Active Substance: INSULIN HUMAN
     Dosage: 13 U, EACH EVENING
     Route: 058
     Dates: start: 1997

REACTIONS (3)
  - Deafness [Unknown]
  - Diabetic complication [Unknown]
  - Arteriosclerosis coronary artery [Unknown]
